FAERS Safety Report 25074374 (Version 1)
Quarter: 2025Q1

REPORT INFORMATION
  Report Type: Other
  Country: TN (occurrence: TN)
  Receive Date: 20250313
  Receipt Date: 20250313
  Transmission Date: 20250409
  Serious: Yes (Other)
  Sender: ANI
  Company Number: TN-ANIPHARMA-015944

PATIENT
  Age: 36 Year
  Sex: Male

DRUGS (27)
  1. CYCLOPHOSPHAMIDE [Suspect]
     Active Substance: CYCLOPHOSPHAMIDE
     Indication: Bone marrow conditioning regimen
     Dates: start: 2016
  2. DAUNORUBICIN [Concomitant]
     Active Substance: DAUNORUBICIN
     Indication: Acute leukaemia
     Dates: start: 201507, end: 201512
  3. CYTARABINE [Concomitant]
     Active Substance: CYTARABINE
     Indication: Acute leukaemia
     Dates: start: 201507, end: 201512
  4. DEXAMETHASONE [Concomitant]
     Active Substance: DEXAMETHASONE
     Indication: Acute leukaemia
     Dates: start: 201507, end: 201512
  5. VINCRISTINE [Concomitant]
     Active Substance: VINCRISTINE
     Indication: Acute leukaemia
     Dates: start: 202006
  6. PREDNISONE [Concomitant]
     Active Substance: PREDNISONE
     Indication: Acute leukaemia
     Dates: start: 202006
  7. ASPARAGINASE [Concomitant]
     Active Substance: ASPARAGINASE
     Indication: Acute leukaemia
     Dates: start: 202006
  8. CYCLOSPORINE [Concomitant]
     Active Substance: CYCLOSPORINE
     Indication: Prophylaxis against graft versus host disease
     Dates: start: 2016
  9. METHOTREXATE [Concomitant]
     Active Substance: METHOTREXATE
     Indication: Prophylaxis against graft versus host disease
     Dates: start: 2016
  10. BUSULFAN [Concomitant]
     Active Substance: BUSULFAN
     Indication: Bone marrow conditioning regimen
     Dates: start: 2016
  11. IDARUBICIN [Concomitant]
     Active Substance: IDARUBICIN
     Indication: Acute leukaemia
     Dates: start: 202006
  12. LENOGRASTIM [Concomitant]
     Active Substance: LENOGRASTIM
     Indication: Acute leukaemia
     Dates: start: 202006
  13. METHYLPREDNISOLONE [Concomitant]
     Active Substance: METHYLPREDNISOLONE
     Indication: Acute leukaemia
  14. AZACITIDINE [Concomitant]
     Active Substance: AZACITIDINE
     Indication: Acute leukaemia
     Route: 058
     Dates: start: 202112
  15. VENETOCLAX [Concomitant]
     Active Substance: VENETOCLAX
     Indication: Acute leukaemia
     Dates: start: 202112
  16. IMIPENEM [Concomitant]
     Active Substance: IMIPENEM
     Indication: Klebsiella infection
  17. MELPHALAN [Concomitant]
     Active Substance: MELPHALAN
     Indication: Bone marrow conditioning regimen
  18. IMIPENEM [Concomitant]
     Active Substance: IMIPENEM
     Indication: Urinary tract infection
  19. VINCRISTINE [Concomitant]
     Active Substance: VINCRISTINE
     Indication: Acute leukaemia
  20. METHOTREXATE [Concomitant]
     Active Substance: METHOTREXATE
     Indication: Acute leukaemia
     Dates: start: 202006
  21. VENETOCLAX [Concomitant]
     Active Substance: VENETOCLAX
     Indication: Acute leukaemia
     Dates: start: 202112
  22. VENETOCLAX [Concomitant]
     Active Substance: VENETOCLAX
     Indication: Acute leukaemia
     Dates: start: 202112
  23. VENETOCLAX [Concomitant]
     Active Substance: VENETOCLAX
     Indication: Acute leukaemia
     Dates: start: 202112
  24. CYCLOPHOSPHAMIDE [Suspect]
     Active Substance: CYCLOPHOSPHAMIDE
     Indication: Acute leukaemia
     Dates: start: 202006
  25. DAUNORUBICIN [Concomitant]
     Active Substance: DAUNORUBICIN
     Indication: Acute leukaemia
     Dates: start: 202006
  26. CYTARABINE [Concomitant]
     Active Substance: CYTARABINE
     Indication: Acute leukaemia
     Dates: start: 202006
  27. DEXAMETHASONE [Concomitant]
     Active Substance: DEXAMETHASONE
     Indication: Acute leukaemia
     Dates: start: 202006

REACTIONS (1)
  - Bronchopulmonary aspergillosis [Unknown]
